FAERS Safety Report 25560403 (Version 1)
Quarter: 2025Q3

REPORT INFORMATION
  Report Type: Spontaneous
  Country: US (occurrence: US)
  Receive Date: 20250715
  Receipt Date: 20250715
  Transmission Date: 20251020
  Serious: No
  Sender: NOVO NORDISK
  Company Number: US-NOVOPROD-1425144

PATIENT
  Sex: Male

DRUGS (8)
  1. OZEMPIC [Suspect]
     Active Substance: SEMAGLUTIDE
     Indication: Renal disorder
  2. OZEMPIC [Suspect]
     Active Substance: SEMAGLUTIDE
     Indication: Cardiac disorder
  3. OZEMPIC [Suspect]
     Active Substance: SEMAGLUTIDE
     Indication: Weight control
  4. OZEMPIC [Suspect]
     Active Substance: SEMAGLUTIDE
     Indication: Diabetes mellitus
     Dates: start: 202504
  5. JARDIANCE [Concomitant]
     Active Substance: EMPAGLIFLOZIN
  6. JARDIANCE [Concomitant]
     Active Substance: EMPAGLIFLOZIN
     Indication: Product used for unknown indication
  7. JARDIANCE [Concomitant]
     Active Substance: EMPAGLIFLOZIN
  8. ALBUTEROL [Concomitant]
     Active Substance: ALBUTEROL
     Indication: Product used for unknown indication

REACTIONS (4)
  - Cough [Unknown]
  - Constipation [Not Recovered/Not Resolved]
  - Injection site swelling [Unknown]
  - Wrong technique in product usage process [Recovered/Resolved]
